FAERS Safety Report 7806521 (Version 2)
Quarter: 2014Q2

REPORT INFORMATION
  Report Type: Spontaneous
  Country: US (occurrence: US)
  Receive Date: 20110210
  Receipt Date: 20140409
  Transmission Date: 20141212
  Serious: Yes (Other)
  Sender: FDA-Public Use
  Company Number: US-BIOGENIDEC-2011BI004083

PATIENT
  Sex: Female
  Weight: 77 kg

DRUGS (14)
  1. AVONEX [Suspect]
     Indication: MULTIPLE SCLEROSIS
     Route: 030
     Dates: start: 20020107
  2. FEXOFENADINE HCL [Concomitant]
     Indication: MULTIPLE ALLERGIES
     Route: 048
  3. TRIAMCINOLONE ACETONIDE [Concomitant]
     Route: 061
  4. POTASSIUM CHLORIDE [Concomitant]
  5. LASIX [Concomitant]
     Route: 048
  6. MAXALT [Concomitant]
     Indication: HEADACHE
  7. HYDROCODONE-ACETAMINOPHEN [Concomitant]
     Indication: PAIN
  8. DIAZEPAM [Concomitant]
  9. TOPAMAX [Concomitant]
  10. VERAPAMIL HCL [Concomitant]
  11. APRODINE [Concomitant]
  12. ASPIRIN [Concomitant]
  13. PREMARIN [Concomitant]
  14. WELLBUTRIN [Concomitant]

REACTIONS (1)
  - Breast cancer [Unknown]
